FAERS Safety Report 14296280 (Version 1)
Quarter: 2017Q4

REPORT INFORMATION
  Report Type: Other
  Country: NO (occurrence: NO)
  Receive Date: 20171218
  Receipt Date: 20171218
  Transmission Date: 20180321
  Serious: Yes (Other)
  Sender: FDA-Public Use
  Company Number: NO-DEXPHARM-20171883

PATIENT
  Age: 72 Year
  Sex: Female

DRUGS (7)
  1. FENTANYL. [Suspect]
     Active Substance: FENTANYL
     Indication: ANALGESIC THERAPY
     Route: 062
  2. DICLOFENAC [Suspect]
     Active Substance: DICLOFENAC
     Indication: PAIN
  3. PREGABALIN. [Suspect]
     Active Substance: PREGABALIN
     Indication: BACK PAIN
  4. ATORVASTATIN [Interacting]
     Active Substance: ATORVASTATIN
     Indication: HYPERCHOLESTEROLAEMIA
  5. ASPIRIN. [Suspect]
     Active Substance: ASPIRIN
     Indication: CAROTID ARTERY STENOSIS
  6. NALOXEGOL [Interacting]
     Active Substance: NALOXEGOL
  7. LANSOPRAZOLE. [Interacting]
     Active Substance: LANSOPRAZOLE
     Indication: DYSPEPSIA

REACTIONS (5)
  - Constipation [Recovering/Resolving]
  - Drug interaction [Unknown]
  - Renal impairment [Unknown]
  - Incorrect dose administered [Unknown]
  - Somnolence [Recovered/Resolved]
